FAERS Safety Report 12649036 (Version 1)
Quarter: 2016Q3

REPORT INFORMATION
  Report Type: Report from Study
  Country: US (occurrence: US)
  Receive Date: 20160812
  Receipt Date: 20160812
  Transmission Date: 20161109
  Serious: Yes (Other)
  Sender: FDA-Public Use
  Company Number: PHEH2016US020262

PATIENT

DRUGS (1)
  1. AFINITOR [Suspect]
     Active Substance: EVEROLIMUS
     Indication: ASTROCYTOMA, LOW GRADE
     Dosage: 2.5 MG, UNK, MON, WED, FRIDAY
     Route: 048

REACTIONS (2)
  - Aggression [Not Recovered/Not Resolved]
  - Pneumonia [Not Recovered/Not Resolved]
